FAERS Safety Report 18677437 (Version 1)
Quarter: 2020Q4

REPORT INFORMATION
  Report Type: Spontaneous
  Country: TW (occurrence: TW)
  Receive Date: 20201229
  Receipt Date: 20201229
  Transmission Date: 20210114
  Serious: Yes (Death, Hospitalization, Other)
  Sender: FDA-Public Use
  Company Number: TW-MYLANLABS-2020M1105657

PATIENT
  Age: 58 Year
  Sex: Female

DRUGS (12)
  1. CHLORPROMAZINE. [Concomitant]
     Active Substance: CHLORPROMAZINE
     Indication: PERSECUTORY DELUSION
     Dosage: 200 MILLIGRAM
  2. CLOZAPINE. [Suspect]
     Active Substance: CLOZAPINE
     Indication: SCHIZOAFFECTIVE DISORDER
     Dosage: 200-300 MILLIGRAM, QD
  3. SENNOSIDE                          /00571901/ [Concomitant]
     Active Substance: SENNOSIDES A AND B
     Indication: CONSTIPATION PROPHYLAXIS
  4. SODIUM VALPROATE [Concomitant]
     Active Substance: VALPROATE SODIUM
     Indication: SOMATIC SYMPTOM DISORDER
  5. MAGNESIUM [Concomitant]
     Active Substance: MAGNESIUM
     Indication: CONSTIPATION PROPHYLAXIS
  6. RISPERIDONE. [Concomitant]
     Active Substance: RISPERIDONE
     Indication: PSYCHOTIC SYMPTOM
  7. OLANZAPINE. [Concomitant]
     Active Substance: OLANZAPINE
     Indication: PSYCHOTIC SYMPTOM
  8. SODIUM VALPROATE [Concomitant]
     Active Substance: VALPROATE SODIUM
     Indication: PERSECUTORY DELUSION
     Dosage: 500-700 MG
  9. BIPERIDEN [Concomitant]
     Active Substance: BIPERIDEN
     Indication: SOMATIC SYMPTOM DISORDER
  10. CHLORPROMAZINE. [Concomitant]
     Active Substance: CHLORPROMAZINE
     Indication: SOMATIC SYMPTOM DISORDER
  11. BIPERIDEN [Concomitant]
     Active Substance: BIPERIDEN
     Indication: PERSECUTORY DELUSION
     Dosage: 2 MILLIGRAM
  12. CLOZAPINE. [Suspect]
     Active Substance: CLOZAPINE
     Dosage: 275 MILLIGRAM, QD

REACTIONS (9)
  - Fatigue [Unknown]
  - Intestinal infarction [Fatal]
  - Hypotension [Unknown]
  - Septic shock [Fatal]
  - Decreased appetite [Unknown]
  - Dyschezia [Unknown]
  - Hypoxia [Unknown]
  - Abdominal pain upper [Unknown]
  - Tachycardia [Unknown]
